FAERS Safety Report 10698377 (Version 2)
Quarter: 2015Q1

REPORT INFORMATION
  Report Type: Spontaneous
  Country: US (occurrence: None)
  Receive Date: 20141224
  Receipt Date: 20150331
  Transmission Date: 20150721
  Serious: Yes (Other)
  Sender: FDA-Public Use
  Company Number: PHEH2014US023431

PATIENT
  Sex: Female

DRUGS (1)
  1. AFINITOR [Suspect]
     Active Substance: EVEROLIMUS
     Indication: BREAST CANCER
     Route: 048

REACTIONS (8)
  - Metastases to bone [None]
  - Aphasia [None]
  - Oral pain [None]
  - Tooth loss [None]
  - Dysphagia [None]
  - Malignant neoplasm progression [None]
  - Weight decreased [None]
  - Product quality issue [None]
